FAERS Safety Report 22669203 (Version 2)
Quarter: 2023Q4

REPORT INFORMATION
  Report Type: Spontaneous
  Country: US (occurrence: US)
  Receive Date: 20230704
  Receipt Date: 20231006
  Transmission Date: 20240110
  Serious: No
  Sender: FDA-Public Use
  Company Number: US-SA-SAC20230703001025

PATIENT
  Age: 38 Year
  Sex: Male

DRUGS (1)
  1. DUPIXENT [Suspect]
     Active Substance: DUPILUMAB
     Dosage: 300 MG, FREQUENCY: OTHER
     Route: 058

REACTIONS (3)
  - Injection site vesicles [Unknown]
  - Pharyngitis streptococcal [Unknown]
  - Injection site pain [Unknown]

NARRATIVE: CASE EVENT DATE: 20230901
